FAERS Safety Report 9184097 (Version 3)
Quarter: 2013Q3

REPORT INFORMATION
  Report Type: Spontaneous
  Country: US (occurrence: US)
  Receive Date: 20130322
  Receipt Date: 20130717
  Transmission Date: 20140515
  Serious: Yes (Death)
  Sender: FDA-Public Use
  Company Number: US-PFIZER INC-2013091694

PATIENT
  Age: 65 Year
  Sex: Female
  Weight: 99.32 kg

DRUGS (20)
  1. REVATIO [Suspect]
     Indication: PULMONARY HYPERTENSION
     Dosage: 40 MG, 3X/DAY (2-20 MG)
     Dates: start: 20110719
  2. REVATIO [Suspect]
     Dosage: 40 MG, 3X/DAY (2-20MG)
     Route: 048
     Dates: start: 20120106
  3. WARFARIN [Concomitant]
     Dosage: 1 -2 TABLET (5MG) EVERY DAY AS DIRECTED PER INR
     Route: 048
     Dates: start: 20120709
  4. PREDNISONE [Concomitant]
     Dosage: 10 MG, 1X/DAY
     Route: 048
     Dates: start: 20120607
  5. VERAPAMIL ER (HS) [Concomitant]
     Dosage: 240 MG, EVERY MORNING AT BEDTIME
     Route: 048
     Dates: start: 20120607
  6. VITAMIN D3 [Concomitant]
     Dosage: 1 TABLET (1000 UNIT) EVERY DAY
     Route: 048
     Dates: start: 20120503
  7. DIGOXIN [Concomitant]
     Dosage: 250 UG, 1X/DAY
     Route: 048
     Dates: start: 20120203
  8. ASPIRIN [Concomitant]
     Dosage: 81 MG, 1X/DAY
     Route: 048
     Dates: start: 20111028
  9. ADVAIR DISKUS [Concomitant]
     Dosage: 500MCG-50 MCG/DOSE FOR INHALATION- 1 PUFF 2X/DAY IN AM AND PM 12 HOURS APART
     Route: 055
     Dates: start: 20111028
  10. LASIX [Concomitant]
     Dosage: 40 MG, 2X/DAY
     Route: 048
     Dates: start: 20111028
  11. SERTRALINE [Concomitant]
     Dosage: 25 MG, 1X/DAY
     Route: 048
  12. ALPRAZOLAM [Concomitant]
     Dosage: 0.5 MG, 1X/DAY
     Route: 048
  13. FERROUS SULFATE ER [Concomitant]
     Dosage: 325 MG (65 MG IRON) TAKE 2 EVERY DAY
     Route: 048
  14. SINGULAIR [Concomitant]
     Dosage: 10 MG, 1X/DAY IN EVENING
     Route: 048
  15. SPIRIVA [Concomitant]
     Dosage: 18 UG, 1X/DAY
     Route: 055
  16. ACCUPRIL [Concomitant]
     Dosage: 10 MG, 1X/DAY
     Route: 048
     Dates: start: 20121120, end: 20121228
  17. ACCUPRIL [Concomitant]
     Dosage: 20 MG, 2X/DAY
     Route: 048
     Dates: end: 20121228
  18. VERAPAMIL [Concomitant]
     Dosage: 120 MG, EVERY PM
     Route: 048
     Dates: start: 20120607, end: 20121228
  19. VERAPAMIL [Concomitant]
     Dosage: 120 MG, EVERY AM
     Route: 048
     Dates: start: 20121228
  20. RAMIPRIL [Concomitant]
     Dosage: 10 MG, 1X/DAY
     Route: 048
     Dates: start: 20111028, end: 20121228

REACTIONS (2)
  - Death [Fatal]
  - Off label use [Unknown]
